FAERS Safety Report 24033652 (Version 2)
Quarter: 2024Q3

REPORT INFORMATION
  Report Type: Spontaneous
  Country: JP (occurrence: JP)
  Receive Date: 20240701
  Receipt Date: 20240725
  Transmission Date: 20241017
  Serious: No
  Sender: AMGEN
  Company Number: JP-AMGEN-JPNSP2024125328

PATIENT
  Age: 62 Year
  Sex: Female

DRUGS (1)
  1. EVENITY [Suspect]
     Active Substance: ROMOSOZUMAB-AQQG
     Indication: Osteoporosis
     Dosage: 210 MILLIGRAM, QMO
     Route: 058

REACTIONS (1)
  - Extraskeletal ossification [Recovered/Resolved]
